FAERS Safety Report 9702840 (Version 1)
Quarter: 2013Q4

REPORT INFORMATION
  Report Type: Spontaneous
  Country: US (occurrence: None)
  Receive Date: 20131119
  Receipt Date: 20131119
  Transmission Date: 20140711
  Serious: Yes (Hospitalization)
  Sender: FDA-Public Use
  Company Number: NXG-13-016

PATIENT
  Age: 54 Year
  Sex: Female

DRUGS (1)
  1. CHENODAL [Suspect]
     Indication: LIPIDOSIS

REACTIONS (1)
  - Liver function test abnormal [None]
